FAERS Safety Report 22714003 (Version 3)
Quarter: 2023Q4

REPORT INFORMATION
  Report Type: Spontaneous
  Country: JP (occurrence: JP)
  Receive Date: 20230717
  Receipt Date: 20231117
  Transmission Date: 20240110
  Serious: Yes (Other)
  Sender: FDA-Public Use
  Company Number: JP-BRISTOL-MYERS SQUIBB COMPANY-2023-097900

PATIENT
  Age: 68 Year
  Sex: Male

DRUGS (2)
  1. YERVOY [Suspect]
     Active Substance: IPILIMUMAB
     Indication: Renal cell carcinoma
     Dosage: 4 TIMES OF TREATMENT ADMINISTRATIONS
     Route: 041
  2. OPDIVO [Suspect]
     Active Substance: NIVOLUMAB
     Indication: Renal cell carcinoma
     Dosage: 4 TIMES OF TREATMENT ADMINISTRATIONS

REACTIONS (5)
  - Cardiomyopathy [Unknown]
  - Decreased appetite [Unknown]
  - Malaise [Unknown]
  - Secondary adrenocortical insufficiency [Unknown]
  - Thyroiditis [Unknown]
